FAERS Safety Report 15075482 (Version 1)
Quarter: 2018Q2

REPORT INFORMATION
  Report Type: Report from Study
  Country: US (occurrence: US)
  Receive Date: 20180627
  Receipt Date: 20180627
  Transmission Date: 20180711
  Serious: Yes (Other)
  Sender: FDA-Public Use
  Company Number: US-SAOL THERAPEUTICS-2018SAO00556

PATIENT
  Age: 68 Year
  Sex: Female

DRUGS (16)
  1. COMPOUNDED BACLOFEN [Suspect]
     Active Substance: BACLOFEN
     Dosage: 79.02 ?G, \DAY
     Route: 037
     Dates: start: 20160922
  2. BUPIVACAINE. [Suspect]
     Active Substance: BUPIVACAINE
     Dosage: 6.532 MG, \DAY, MAX TOTAL DAILY DOSE
     Route: 037
     Dates: start: 20171026
  3. BUPIVACAINE. [Suspect]
     Active Substance: BUPIVACAINE
     Dosage: 6.532 MG, \DAY, MAX TOTAL DAILY DOSE
     Route: 037
     Dates: start: 20161006
  4. DILAUDID [Suspect]
     Active Substance: HYDROMORPHONE HYDROCHLORIDE
     Dosage: 0.299 MG, \DAY
     Route: 037
     Dates: start: 20170720, end: 20170926
  5. DILAUDID [Suspect]
     Active Substance: HYDROMORPHONE HYDROCHLORIDE
     Dosage: 0.41 MG, \DAY, MAX TOTAL DAILY DOSE
     Route: 037
     Dates: start: 20170720, end: 20170926
  6. COMPOUNDED BACLOFEN [Suspect]
     Active Substance: BACLOFEN
     Dosage: 88.00 ?G, \DAY
     Route: 037
     Dates: start: 20170323, end: 20170914
  7. DILAUDID [Suspect]
     Active Substance: HYDROMORPHONE HYDROCHLORIDE
     Dosage: 0.27 MG, \DAY
     Route: 037
     Dates: start: 20161006
  8. DILAUDID [Suspect]
     Active Substance: HYDROMORPHONE HYDROCHLORIDE
     Dosage: 0.384 MG, \DAY, MAX TOTAL DAILY DOSE
     Route: 037
     Dates: start: 20171026
  9. BUPIVACAINE. [Suspect]
     Active Substance: BUPIVACAINE
     Dosage: 4.59 MG, \DAY
     Route: 037
     Dates: start: 20161006
  10. BUPIVACAINE. [Suspect]
     Active Substance: BUPIVACAINE
     Dosage: 4.59 MG, \DAY
     Route: 037
     Dates: start: 20171026
  11. DILAUDID [Suspect]
     Active Substance: HYDROMORPHONE HYDROCHLORIDE
     Dosage: 0.384 MG, \DAY, TOTAL MAX DAILY DOSE
     Dates: start: 20161006
  12. BUPIVACAINE. [Suspect]
     Active Substance: BUPIVACAINE
     Dosage: 5.095 MG, \DAY
     Route: 037
     Dates: start: 20170720, end: 20170926
  13. COMPOUNDED BACLOFEN [Suspect]
     Active Substance: BACLOFEN
     Dosage: 100.97 ?G, \DAY
     Route: 037
     Dates: start: 20170914, end: 20171023
  14. COMPOUNDED BACLOFEN [Suspect]
     Active Substance: BACLOFEN
     Dosage: 110.96 ?G, \DAY
     Route: 037
     Dates: start: 20171023
  15. DILAUDID [Suspect]
     Active Substance: HYDROMORPHONE HYDROCHLORIDE
     Dosage: 0.27 MG, \DAY
     Route: 037
     Dates: start: 20171026
  16. BUPIVACAINE. [Suspect]
     Active Substance: BUPIVACAINE
     Dosage: 7.027 MG, \DAY, MAX TOTAL DAILY DOSE
     Route: 037
     Dates: start: 20170720, end: 20170926

REACTIONS (9)
  - Fall [Unknown]
  - Implant site pain [Recovered/Resolved]
  - Device dislocation [Recovered/Resolved]
  - Device kink [Recovered/Resolved]
  - Device failure [Recovered/Resolved]
  - Device damage [Recovered/Resolved]
  - Muscle spasms [Recovered/Resolved]
  - Therapeutic response decreased [Unknown]
  - Seroma [Unknown]

NARRATIVE: CASE EVENT DATE: 20170217
